FAERS Safety Report 7918983-1 (Version None)
Quarter: 2011Q4

REPORT INFORMATION
  Report Type: 
  Country: None (occurrence: None)
  Receive Date: 20111116
  Receipt Date: 20111102
  Transmission Date: 20120403
  Serious: Yes (Life-Threatening, Other)
  Sender: FDA-Public Use
  Company Number: JP-ASTRAZENECA-2011SE66312

PATIENT
  Age: 76 Year
  Sex: Male

DRUGS (3)
  1. REMIFENTANIL [Interacting]
     Indication: ANAESTHESIA
  2. PROPOFOL [Suspect]
     Indication: ANAESTHESIA
     Route: 042
  3. ANTIPSYCHOTIC [Interacting]
     Indication: SCHIZOPHRENIA
     Route: 048

REACTIONS (3)
  - COAGULOPATHY [None]
  - DRUG INTERACTION [None]
  - CARDIAC ARREST [None]
